FAERS Safety Report 7611163-9 (Version None)
Quarter: 2011Q3

REPORT INFORMATION
  Report Type: 
  Country: None (occurrence: None)
  Receive Date: 20110715
  Receipt Date: 20110704
  Transmission Date: 20111222
  Serious: Yes (Hospitalization, Other)
  Sender: FDA-Public Use
  Company Number: JP-AMGEN-JPNCT2010009877

PATIENT
  Age: 58 Year
  Sex: Female

DRUGS (19)
  1. MUCOSTA [Concomitant]
     Dosage: UNK
     Route: 048
  2. DOGMATYL [Concomitant]
     Route: 048
  3. DUROTEP TAKEDA [Concomitant]
     Dosage: UNK
     Route: 062
  4. MORPHINE [Concomitant]
     Dosage: UNK
     Route: 048
  5. PANITUMUMAB [Suspect]
     Indication: COLORECTAL CANCER
     Dosage: 6 MG/KG, Q2WK
     Route: 041
     Dates: start: 20100723, end: 20100917
  6. PANITUMUMAB [Suspect]
     Dosage: 6 MG/KG, Q2WK
     Route: 041
     Dates: start: 20101015, end: 20101029
  7. ETODOLAC [Concomitant]
     Dosage: UNK
     Route: 048
  8. MARCAINE [Concomitant]
     Route: 008
  9. FENTANYL CITRATE [Concomitant]
     Route: 062
  10. HIRUDOID [Concomitant]
     Dosage: UNK
     Route: 062
  11. PANITUMUMAB [Suspect]
     Dosage: 6 MG/KG, Q2WK
     Route: 041
     Dates: start: 20101207, end: 20101224
  12. PANITUMUMAB [Suspect]
     Dosage: 6 MG/KG, Q2WK
     Route: 041
     Dates: start: 20110121, end: 20110121
  13. PANITUMUMAB [Suspect]
     Dosage: 6 MG/KG, Q2WK
     Route: 041
     Dates: start: 20110520
  14. LANSOPRAZOLE [Concomitant]
     Dosage: UNK
     Route: 048
  15. ANTIHISTAMINES [Concomitant]
     Indication: PROPHYLAXIS
     Dosage: UNK
     Route: 065
  16. MAGMITT [Concomitant]
     Dosage: UNK
     Route: 048
  17. GABAPENTIN [Concomitant]
     Dosage: UNK
     Route: 048
  18. MORPHINAN DERIVATIVES [Concomitant]
     Route: 042
  19. PANITUMUMAB [Suspect]
     Dosage: 6 MG/KG, Q2WK
     Route: 041
     Dates: start: 20110318, end: 20110422

REACTIONS (2)
  - DERMATITIS ACNEIFORM [None]
  - BACK PAIN [None]
